FAERS Safety Report 9429898 (Version 1)
Quarter: 2013Q3

REPORT INFORMATION
  Report Type: Spontaneous
  Country: IN (occurrence: None)
  Receive Date: 20130726
  Receipt Date: 20130726
  Transmission Date: 20140515
  Serious: Yes (Other)
  Sender: FDA-Public Use
  Company Number: AUR-APL-2013-06096

PATIENT
  Age: 58 Year
  Sex: Male

DRUGS (1)
  1. AMLODIPINE (AMLODIPINE) [Suspect]
     Indication: BLOOD PRESSURE ABNORMAL

REACTIONS (2)
  - Procedural hypotension [None]
  - Metabolic acidosis [None]
